FAERS Safety Report 7349989-1 (Version None)
Quarter: 2011Q1

REPORT INFORMATION
  Report Type: 
  Country: None (occurrence: None)
  Receive Date: 20110314
  Receipt Date: 20110303
  Transmission Date: 20110831
  Serious: Yes (Other)
  Sender: FDA-Public Use
  Company Number: US-ROCHE-763891

PATIENT
  Sex: Female
  Weight: 60.8 kg

DRUGS (2)
  1. MOBIC [Concomitant]
  2. BONIVA [Suspect]
     Indication: OSTEOPOROSIS
     Dosage: CO-INDICATION: OSTEOPENIA.
     Route: 048
     Dates: start: 20090101, end: 20090101

REACTIONS (1)
  - NECK MASS [None]
